FAERS Safety Report 22166607 (Version 2)
Quarter: 2023Q2

REPORT INFORMATION
  Report Type: Spontaneous
  Country: CO (occurrence: CO)
  Receive Date: 20230403
  Receipt Date: 20230413
  Transmission Date: 20230721
  Serious: Yes (Hospitalization, Other)
  Sender: FDA-Public Use
  Company Number: CO-ORG100014127-2023000287

PATIENT
  Age: 50 Year
  Sex: Male
  Weight: 167 kg

DRUGS (2)
  1. LYSODREN [Suspect]
     Active Substance: MITOTANE
     Indication: Adrenocortical carcinoma
     Dosage: 2000 MILLIGRAMS IN THE MORNING AND 1500 MILLIGRAMS AT NIGHT
     Route: 048
     Dates: start: 20211207, end: 20230321
  2. EVOLOCUMAB [Concomitant]
     Active Substance: EVOLOCUMAB
     Indication: Hypercholesterolaemia
     Dates: start: 20230102, end: 20230319

REACTIONS (9)
  - Hyperkalaemia [Recovered/Resolved]
  - Hyponatraemia [Recovered/Resolved]
  - Musculoskeletal pain [Unknown]
  - Muscular weakness [Unknown]
  - Asthenia [Unknown]
  - Somnolence [Unknown]
  - Nausea [Unknown]
  - Fatigue [Unknown]
  - Diarrhoea [Recovered/Resolved]

NARRATIVE: CASE EVENT DATE: 20230228
